FAERS Safety Report 7917927-6 (Version None)
Quarter: 2011Q4

REPORT INFORMATION
  Report Type: 
  Country: None (occurrence: None)
  Receive Date: 20111116
  Receipt Date: 20111110
  Transmission Date: 20120403
  Serious: Yes (Hospitalization, Other)
  Sender: FDA-Public Use
  Company Number: PHHY2011PE099251

PATIENT
  Sex: Female

DRUGS (6)
  1. VITAMIN D [Concomitant]
  2. CALCIUM [Concomitant]
  3. ZOLEDRONOC ACID [Suspect]
     Indication: OSTEOPOROSIS
     Dosage: 5 MG/100 ML
     Route: 042
     Dates: start: 20101202
  4. VALPROIC ACID [Concomitant]
     Indication: PETIT MAL EPILEPSY
  5. PROTON PUMP INHIBITORS [Concomitant]
     Indication: HELICOBACTER GASTRITIS
  6. LEVOTHYROXINE SODIUM [Concomitant]
     Indication: HYPOTHYROIDISM
     Dosage: 50 UG, 4 TIMES PER WEEK

REACTIONS (4)
  - FRACTURE DELAYED UNION [None]
  - CREATININE RENAL CLEARANCE DECREASED [None]
  - RENAL IMPAIRMENT [None]
  - PARATHYROID TUMOUR BENIGN [None]
